FAERS Safety Report 6888809-6 (Version None)
Quarter: 2010Q3

REPORT INFORMATION
  Report Type: 
  Country: None (occurrence: None)
  Receive Date: 20100730
  Receipt Date: 20071025
  Transmission Date: 20110219
  Serious: Yes (Hospitalization, Other)
  Sender: FDA-Public Use
  Company Number: US-PFIZER INC-2007090252

PATIENT
  Sex: Male
  Weight: 79.4 kg

DRUGS (1)
  1. LIPITOR [Suspect]
     Indication: BLOOD CHOLESTEROL INCREASED
     Dates: end: 20071024

REACTIONS (5)
  - ALOPECIA [None]
  - LYMPHADENOPATHY [None]
  - OROPHARYNGEAL PAIN [None]
  - PYREXIA [None]
  - THROMBOCYTOPENIA [None]
